FAERS Safety Report 13325177 (Version 1)
Quarter: 2017Q1

REPORT INFORMATION
  Report Type: Spontaneous
  Country: FR (occurrence: FR)
  Receive Date: 20170310
  Receipt Date: 20170310
  Transmission Date: 20170428
  Serious: Yes (Hospitalization, Disabling, Other)
  Sender: FDA-Public Use
  Company Number: FR-PFIZER INC-2017040068

PATIENT
  Age: 74 Year
  Sex: Male
  Weight: 58 kg

DRUGS (1)
  1. INLYTA [Suspect]
     Active Substance: AXITINIB
     Indication: RENAL CANCER METASTATIC
     Dosage: 5 MG, 2X/DAY
     Route: 048
     Dates: start: 20160802, end: 20170117

REACTIONS (3)
  - Asthenia [Recovering/Resolving]
  - Asterixis [Recovering/Resolving]
  - Amyotrophy [Recovering/Resolving]

NARRATIVE: CASE EVENT DATE: 20161218
